FAERS Safety Report 7812997-8 (Version None)
Quarter: 2011Q4

REPORT INFORMATION
  Report Type: 
  Country: None (occurrence: None)
  Receive Date: 20111013
  Receipt Date: 20110930
  Transmission Date: 20120403
  Serious: Yes (Other)
  Sender: FDA-Public Use
  Company Number: JP-MYLANLABS-2011S1020879

PATIENT
  Age: 68 Year
  Sex: Male

DRUGS (7)
  1. LEUCOVORIN CALCIUM [Concomitant]
     Indication: COLORECTAL CANCER METASTATIC
     Dosage: PART OF MFOLFOX6 + BEVACIZUMAB
     Route: 065
     Dates: start: 20090101
  2. FLUOROURACIL [Suspect]
     Dosage: PART OF SLV5FU2 + BEVACIZUMAB
     Route: 065
  3. BEVACIZUMAB [Concomitant]
     Dosage: PART OF SLV5FU2 + BEVACIZUMAB
     Route: 065
  4. FLUOROURACIL [Suspect]
     Indication: COLORECTAL CANCER METASTATIC
     Dosage: PART OF MFOLFOX6 + BEVACIZUMAB
     Route: 065
     Dates: start: 20090101
  5. LEUCOVORIN CALCIUM [Concomitant]
     Dosage: PART OF SLV5FU2 + BEVACIZUMAB
     Route: 065
  6. OXALIPLATIN [Concomitant]
     Indication: COLORECTAL CANCER METASTATIC
     Dosage: PART OF MFOLFOX6 + BEVACIZUMAB
     Route: 065
     Dates: start: 20090101
  7. BEVACIZUMAB [Concomitant]
     Indication: COLORECTAL CANCER METASTATIC
     Dosage: PART OF MFOLFOX6 + BEVACIZUMAB
     Route: 065
     Dates: start: 20090101

REACTIONS (1)
  - HAEMOLYSIS [None]
